FAERS Safety Report 9188114 (Version 2)
Quarter: 2013Q2

REPORT INFORMATION
  Report Type: Spontaneous
  Country: DE (occurrence: DE)
  Receive Date: 20130325
  Receipt Date: 20130425
  Transmission Date: 20140414
  Serious: Yes (Hospitalization)
  Sender: FDA-Public Use
  Company Number: DE-GLAXOSMITHKLINE-D0079199A

PATIENT
  Sex: Female

DRUGS (2)
  1. REQUIP [Suspect]
     Dosage: 6MG IN THE MORNING
     Route: 048
  2. REQUIP-MODUTAB [Suspect]
     Dosage: 2MG IN THE MORNING
     Route: 048

REACTIONS (2)
  - Apraxia [Recovered/Resolved]
  - Therapy change [Unknown]
